FAERS Safety Report 4421128-6 (Version None)
Quarter: 2004Q3

REPORT INFORMATION
  Report Type: 
  Country: None (occurrence: None)
  Receive Date: 20040804
  Receipt Date: 20040723
  Transmission Date: 20050211
  Serious: Yes (Other)
  Sender: FDA-Public Use
  Company Number: NSADSS2002017774

PATIENT
  Age: 7 Year
  Sex: Female
  Weight: 25.5 kg

DRUGS (9)
  1. CISAPRIDE (CISAPRIDE) SUSPENSION [Suspect]
     Indication: INTESTINAL OBSTRUCTION
     Dosage: SEE IMAGE
     Route: 048
     Dates: start: 20020307, end: 20020313
  2. CISAPRIDE (CISAPRIDE) SUSPENSION [Suspect]
     Indication: INTESTINAL OBSTRUCTION
     Dosage: SEE IMAGE
     Route: 048
     Dates: start: 20020313, end: 20020524
  3. PEPCID [Concomitant]
  4. PREVACID [Concomitant]
  5. CARAFATE [Concomitant]
  6. VANCOMYCIN [Concomitant]
  7. REGLAN [Concomitant]
  8. ALBUTEROL (SALBUTAMOL) SPRAY [Concomitant]
  9. FLOVENT (FLUTICASONE PROPIONATE) SPRAY [Concomitant]

REACTIONS (1)
  - ELECTROCARDIOGRAM QT CORRECTED INTERVAL PROLONGED [None]
